FAERS Safety Report 24685446 (Version 2)
Quarter: 2025Q1

REPORT INFORMATION
  Report Type: Spontaneous
  Country: JP (occurrence: JP)
  Receive Date: 20241202
  Receipt Date: 20250120
  Transmission Date: 20250409
  Serious: Yes (Other)
  Sender: MERCK
  Company Number: JP-MSD-2407JPN001348J

PATIENT
  Age: 8 Decade
  Sex: Male

DRUGS (2)
  1. KEYTRUDA [Suspect]
     Active Substance: PEMBROLIZUMAB
     Indication: Renal cell carcinoma
     Route: 041
  2. LENVATINIB MESYLATE [Suspect]
     Active Substance: LENVATINIB MESYLATE
     Indication: Renal cell carcinoma
     Dosage: 20 MILLIGRAM, QD
     Route: 048
     Dates: start: 20231215

REACTIONS (3)
  - Pulmonary artery thrombosis [Recovering/Resolving]
  - Renal vein thrombosis [Recovering/Resolving]
  - Vena cava thrombosis [Recovering/Resolving]

NARRATIVE: CASE EVENT DATE: 20240517
